FAERS Safety Report 23538392 (Version 3)
Quarter: 2024Q1

REPORT INFORMATION
  Report Type: Spontaneous
  Country: US (occurrence: US)
  Receive Date: 20240219
  Receipt Date: 20240321
  Transmission Date: 20240410
  Serious: Yes (Death, Hospitalization, Other)
  Sender: FDA-Public Use
  Company Number: US-BRISTOL-MYERS SQUIBB COMPANY-2024-026210

PATIENT
  Age: 52 Year
  Sex: Male
  Weight: 77.3 kg

DRUGS (4)
  1. ELIQUIS [Suspect]
     Active Substance: APIXABAN
     Indication: Product used for unknown indication
     Route: 048
     Dates: start: 20231218, end: 20231231
  2. BLEOMYCIN [Suspect]
     Active Substance: BLEOMYCIN SULFATE
     Indication: Testis cancer
  3. ETOPOSIDE [Suspect]
     Active Substance: ETOPOSIDE
     Indication: Testis cancer
  4. CISPLATIN [Suspect]
     Active Substance: CISPLATIN
     Indication: Testis cancer

REACTIONS (6)
  - Large intestine infection [Fatal]
  - Septic shock [Fatal]
  - Acute kidney injury [Fatal]
  - Hypovolaemia [Fatal]
  - Neutropenia [Fatal]
  - Neoplasm progression [Fatal]

NARRATIVE: CASE EVENT DATE: 20231230
